FAERS Safety Report 4765823-8 (Version None)
Quarter: 2005Q3

REPORT INFORMATION
  Report Type: 
  Country: None (occurrence: None)
  Receive Date: 20050912
  Receipt Date: 20050830
  Transmission Date: 20060218
  Serious: Yes (Death)
  Sender: FDA-Public Use
  Company Number: PHFR2005GB02876

PATIENT
  Age: 89 Year
  Sex: Female

DRUGS (5)
  1. DICLOFENAC [Suspect]
     Indication: PROCEDURAL PAIN
     Dosage: 50 MG, TID
     Route: 048
     Dates: start: 20050809, end: 20050812
  2. ACETYLSALICYLIC ACID SRT [Suspect]
     Indication: THROMBOSIS PROPHYLAXIS
     Dosage: 150 MG EVERY MORNING
     Route: 048
     Dates: start: 20050410, end: 20050813
  3. BENDROFLUAZIDE [Concomitant]
     Dosage: 2.5 MG EVERY MORNING
     Route: 048
  4. PARACETAMOL [Concomitant]
     Dosage: 1 G, QID
     Route: 048
  5. BRULIDINE [Concomitant]
     Dosage: 150 MG EVERY NIGHT
     Route: 048

REACTIONS (4)
  - DUODENAL ULCER HAEMORRHAGE [None]
  - PERFORATED DUODENAL ULCER REPAIR [None]
  - SEPSIS [None]
  - SUDDEN DEATH [None]
